FAERS Safety Report 17237955 (Version 1)
Quarter: 2020Q1

REPORT INFORMATION
  Report Type: Spontaneous
  Country: US (occurrence: US)
  Receive Date: 20200106
  Receipt Date: 20200106
  Transmission Date: 20200409
  Serious: No
  Sender: FDA-Public Use
  Company Number: US-PACIRA-201800201

PATIENT
  Age: 20 Year
  Sex: Male

DRUGS (4)
  1. EXPAREL [Suspect]
     Active Substance: BUPIVACAINE
     Indication: NERVE BLOCK
     Dosage: 4ML 1/2 LIPOSOMAL BUPIVACAINE, 1/2 BUPIVACAINE 0.25%, 1:200,000 EPINEPHRINE
  2. HYOLURONIDASE [Concomitant]
     Indication: NERVE BLOCK
     Dosage: UNK, SINGLE, FREQUENCY : SINGLE
     Route: 065
  3. BUPIVACAINE. [Concomitant]
     Active Substance: BUPIVACAINE
     Indication: NERVE BLOCK
     Dosage: 4ML 1/2 LIPOSOMAL BUPIVACAINE 1/2 BUPIVACAINE 0.25%,1:200,000 EPINEPHRINE
     Route: 065
  4. EPINEPHRINE. [Concomitant]
     Active Substance: EPINEPHRINE
     Indication: NERVE BLOCK
     Dosage: 4ML 1/2 LIPOSOMAL BUPIVACAINE, 1/2 BUPIVACAINE 0.25%, 1:200,000 EPINEPHRINE
     Route: 065

REACTIONS (2)
  - No adverse event [Unknown]
  - Off label use [Unknown]
